FAERS Safety Report 8986252 (Version 2)
Quarter: 2013Q1

REPORT INFORMATION
  Report Type: Report from Study
  Country: US (occurrence: US)
  Receive Date: 20121226
  Receipt Date: 20130222
  Transmission Date: 20140127
  Serious: Yes (Hospitalization)
  Sender: FDA-Public Use
  Company Number: US-ROCHE-1168886

PATIENT
  Age: 55 Year
  Sex: Female

DRUGS (21)
  1. PEG-INTERFERON ALFA 2A [Suspect]
     Indication: CHRONIC HEPATITIS C
     Route: 058
     Dates: start: 20120727
  2. PEG-INTERFERON ALFA 2A [Suspect]
     Route: 058
  3. RIBAVIRIN [Suspect]
     Indication: CHRONIC HEPATITIS C
     Route: 048
     Dates: start: 20120727
  4. ASUNAPREVIR [Suspect]
     Indication: CHRONIC HEPATITIS C
     Route: 048
     Dates: start: 20120727
  5. DACLATASVIR [Suspect]
     Indication: CHRONIC HEPATITIS C
     Route: 048
     Dates: start: 20120727
  6. AMANTADINE HCL [Concomitant]
  7. AMLODIPINE [Concomitant]
  8. AZO-STANDARD [Concomitant]
  9. DIAZEPAM [Concomitant]
  10. GABAPENTIN [Concomitant]
  11. IMIPRAMINE [Concomitant]
  12. LANTUS [Concomitant]
  13. LEVOTHYROXINE SODIUM [Concomitant]
  14. LOSARTAN POTASSIUM [Concomitant]
  15. INSULIN ASPART [Concomitant]
  16. PROMETHAZINE [Concomitant]
  17. TRAMADOL [Concomitant]
  18. VITAMIN D3 [Concomitant]
  19. NITROFURANTOIN [Concomitant]
  20. CINNAMON [Concomitant]
  21. VITAMIN K [Concomitant]

REACTIONS (1)
  - Encephalopathy [Recovered/Resolved]
